FAERS Safety Report 6882215-6 (Version None)
Quarter: 2010Q3

REPORT INFORMATION
  Report Type: 
  Country: None (occurrence: None)
  Receive Date: 20100728
  Receipt Date: 20100728
  Transmission Date: 20110219
  Serious: Yes (Hospitalization)
  Sender: FDA-Public Use
  Company Number: None

PATIENT
  Age: 72 Year
  Sex: Female

DRUGS (4)
  1. CREST W/ FLUORIDE [Suspect]
     Dosage: INTRAORAL
     Dates: start: 20100101, end: 20100101
  2. BIAXIN [Concomitant]
  3. THEOPHYLLINE [Concomitant]
  4. ADVIL /00044201/(MEFENAMIC ACID) [Concomitant]

REACTIONS (1)
  - LIP SWELLING [None]
